FAERS Safety Report 19236904 (Version 4)
Quarter: 2021Q3

REPORT INFORMATION
  Report Type: Report from Study
  Country: US (occurrence: US)
  Receive Date: 20210510
  Receipt Date: 20210730
  Transmission Date: 20211014
  Serious: Yes (Hospitalization)
  Sender: FDA-Public Use
  Company Number: US-GLAXOSMITHKLINE-US2021GSK099861

PATIENT
  Age: 55 Year
  Sex: Female
  Weight: 97.1 kg

DRUGS (15)
  1. DOSTARLIMAB [Suspect]
     Active Substance: DOSTARLIMAB
     Dosage: 1000 MG
     Dates: start: 20210415, end: 20210415
  2. BEVACIZUMAB. [Suspect]
     Active Substance: BEVACIZUMAB
     Indication: OVARIAN CANCER
     Route: 042
  3. CISPLATIN. [Concomitant]
     Active Substance: CISPLATIN
     Indication: OVARIAN CANCER
     Route: 042
  4. NIRAPARIB [Suspect]
     Active Substance: NIRAPARIB
     Dosage: 200 MG
     Dates: end: 20210505
  5. DOSTARLIMAB [Suspect]
     Active Substance: DOSTARLIMAB
     Dosage: 10 MG/ML
  6. CARBOPLATIN. [Suspect]
     Active Substance: CARBOPLATIN
     Dosage: 6 AUC
     Route: 042
     Dates: start: 20201231, end: 20201231
  7. PACLITAXEL. [Suspect]
     Active Substance: PACLITAXEL
     Indication: OVARIAN CANCER
     Dosage: UNK
     Route: 042
  8. NIRAPARIB [Suspect]
     Active Substance: NIRAPARIB
     Indication: OVARIAN CANCER
     Dosage: UNK
  9. NIRAPARIB [Suspect]
     Active Substance: NIRAPARIB
     Dosage: 100 MG
  10. DOCETAXEL. [Concomitant]
     Active Substance: DOCETAXEL
     Indication: OVARIAN CANCER
     Dosage: UNK
     Route: 042
  11. NIRAPARIB [Suspect]
     Active Substance: NIRAPARIB
     Dosage: 100 MG
     Dates: start: 20210514
  12. BISACODYL. [Concomitant]
     Active Substance: BISACODYL
     Indication: CONSTIPATION
     Dosage: 10 MG, PRN
     Route: 054
     Dates: start: 20210409
  13. GLYCERINE [Concomitant]
     Active Substance: GLYCERIN
     Indication: CONSTIPATION
     Dosage: 2 G, PRN
     Route: 054
     Dates: start: 20210409
  14. DOSTARLIMAB [Suspect]
     Active Substance: DOSTARLIMAB
     Indication: OVARIAN CANCER
     Dosage: 500 MG
     Dates: start: 20200910, end: 20200910
  15. CARBOPLATIN. [Suspect]
     Active Substance: CARBOPLATIN
     Indication: OVARIAN CANCER
     Dosage: 6 AUC
     Route: 042
     Dates: start: 20200820, end: 20200820

REACTIONS (1)
  - Dyspnoea [Recovered/Resolved]

NARRATIVE: CASE EVENT DATE: 20210505
